FAERS Safety Report 4780857-5 (Version None)
Quarter: 2005Q3

REPORT INFORMATION
  Report Type: 
  Country: None (occurrence: None)
  Receive Date: 20050914
  Receipt Date: 20040802
  Transmission Date: 20060218
  Serious: Yes (Disabling)
  Sender: FDA-Public Use
  Company Number: 163-20785-04080082

PATIENT
  Age: 78 Year
  Sex: Male

DRUGS (13)
  1. THALOMID [Suspect]
     Indication: MULTIPLE MYELOMA
     Dosage: 150 MG, DAILY, ORAL
     Route: 048
     Dates: start: 20030401, end: 20040601
  2. DECADRON [Concomitant]
  3. COUMADIN [Concomitant]
  4. LEXAPRO (ESCITALOPRAM) (TABLETS) [Concomitant]
  5. ZOCOR [Concomitant]
  6. TERAZOSIN (TERAZOSIN) (CAPSULES) [Concomitant]
  7. GLYBURIDE (GLIBENCLAMIDE) (TABLETS) [Concomitant]
  8. DURAGESIC (FENTANYL) (POULTICE OR PATCH) [Concomitant]
  9. OXCODONE [Concomitant]
  10. K+ (POTASSIUM) [Concomitant]
  11. LASIX [Concomitant]
  12. BEXTRA [Concomitant]
  13. MIRALAX [Concomitant]

REACTIONS (4)
  - DISEASE PROGRESSION [None]
  - PARAPARESIS [None]
  - PLASMACYTOMA [None]
  - SPINAL CORD COMPRESSION [None]
